FAERS Safety Report 18865634 (Version 1)
Quarter: 2021Q1

REPORT INFORMATION
  Report Type: Spontaneous
  Country: US (occurrence: US)
  Receive Date: 20210208
  Receipt Date: 20210208
  Transmission Date: 20210420
  Serious: Yes (Other)
  Sender: FDA-Public Use
  Company Number: None

PATIENT
  Sex: Female

DRUGS (18)
  1. METOPROLOL. [Concomitant]
     Active Substance: METOPROLOL
  2. PROCHLORPERAZINE. [Concomitant]
     Active Substance: PROCHLORPERAZINE
  3. INLYTA [Suspect]
     Active Substance: AXITINIB
     Indication: RENAL CANCER
     Route: 048
     Dates: start: 20201219
  4. ATORVASTATIN [Concomitant]
     Active Substance: ATORVASTATIN
  5. HYDROCHLOROTHIAZIDE. [Concomitant]
     Active Substance: HYDROCHLOROTHIAZIDE
  6. VITAMIN B12 [Concomitant]
     Active Substance: CYANOCOBALAMIN
  7. ONDANSETRON [Concomitant]
     Active Substance: ONDANSETRON
  8. VENTOLIN [Concomitant]
     Active Substance: ALBUTEROL SULFATE
  9. VITAMIN D [Concomitant]
     Active Substance: VITAMIN D NOS
  10. LOSARTAN. [Concomitant]
     Active Substance: LOSARTAN
  11. ALENDRONATE [Concomitant]
     Active Substance: ALENDRONATE SODIUM
  12. RIBOFLAVIN [Concomitant]
     Active Substance: RIBOFLAVIN
  13. CETIRIZINE [Concomitant]
     Active Substance: CETIRIZINE HYDROCHLORIDE
  14. COMBIGAN [Concomitant]
     Active Substance: BRIMONIDINE TARTRATE\TIMOLOL MALEATE
  15. CALCIUM [Concomitant]
     Active Substance: CALCIUM
  16. METFORMIN [Concomitant]
     Active Substance: METFORMIN HYDROCHLORIDE
  17. PLAVIX [Concomitant]
     Active Substance: CLOPIDOGREL BISULFATE
  18. LEVEMIR [Concomitant]
     Active Substance: INSULIN DETEMIR

REACTIONS (1)
  - Dyspnoea [None]
